FAERS Safety Report 20619416 (Version 12)
Quarter: 2023Q2

REPORT INFORMATION
  Report Type: Report from Study
  Country: CN (occurrence: CN)
  Receive Date: 20220322
  Receipt Date: 20230610
  Transmission Date: 20230722
  Serious: Yes (Hospitalization, Other)
  Sender: FDA-Public Use
  Company Number: CN-TAKEDA-2022TUS005302

PATIENT
  Age: 55 Year
  Sex: Female
  Weight: 45 kg

DRUGS (20)
  1. IXAZOMIB [Suspect]
     Active Substance: IXAZOMIB
     Indication: Plasma cell myeloma
     Dosage: 4 MILLIGRAM
     Route: 048
     Dates: start: 20211229, end: 20220119
  2. DEXAMETHASONE [Suspect]
     Active Substance: DEXAMETHASONE
     Indication: Plasma cell myeloma
     Dosage: 40 MILLIGRAM
     Route: 048
     Dates: start: 20211229, end: 20220119
  3. LENALIDOMIDE [Suspect]
     Active Substance: LENALIDOMIDE
     Indication: Plasma cell myeloma
     Dosage: 25 MILLIGRAM
     Route: 048
     Dates: start: 20211229, end: 20220119
  4. CEFOPERAZONE SODIUM\SULBACTAM SODIUM [Concomitant]
     Active Substance: CEFOPERAZONE SODIUM\SULBACTAM SODIUM
     Indication: Pneumonia
     Dosage: 3 GRAM, TID
     Route: 042
     Dates: start: 20211222, end: 20211230
  5. HERBALS\DIAMMONIUM GLYCYRRHIZINATE [Concomitant]
     Active Substance: HERBALS\DIAMMONIUM GLYCYRRHIZINATE
     Indication: Prophylaxis
     Dosage: 150 MILLIGRAM, TID
     Route: 048
     Dates: start: 20211222, end: 20220125
  6. METHYLCOBALAMIN [Concomitant]
     Active Substance: METHYLCOBALAMIN
     Indication: Prophylaxis
     Dosage: 0.5 MILLIGRAM, TID
     Route: 048
     Dates: start: 20211222, end: 20220125
  7. CELECOXIB [Concomitant]
     Active Substance: CELECOXIB
     Indication: Compression fracture
     Dosage: 0.2 GRAM, TID
     Route: 048
     Dates: start: 20211225, end: 20220125
  8. Live combined bacillus subtilis and enterococcus faecium [Concomitant]
     Indication: Prophylaxis
     Dosage: 0.25 GRAM, BID
     Route: 048
     Dates: start: 20211229, end: 20220125
  9. MOSAPRIDE CITRATE [Concomitant]
     Active Substance: MOSAPRIDE CITRATE
     Indication: Prophylaxis
     Dosage: 5 MILLIGRAM, BID
     Route: 048
     Dates: start: 20211229, end: 20220106
  10. PANTOPRAZOLE SODIUM [Concomitant]
     Active Substance: PANTOPRAZOLE SODIUM
     Indication: Prophylaxis
     Dosage: 40 MILLIGRAM, BID
     Route: 048
     Dates: start: 20211229, end: 20220125
  11. AMPICILLIN [Concomitant]
     Active Substance: AMPICILLIN
     Indication: Pneumonia
     Dosage: 0.75 GRAM, BID
     Route: 042
     Dates: start: 20211230, end: 20220103
  12. AMPICILLIN [Concomitant]
     Active Substance: AMPICILLIN
     Dosage: 0.75 GRAM, BID
     Route: 042
     Dates: start: 20220103, end: 20220105
  13. TROPISETRON HYDROCHLORIDE [Concomitant]
     Active Substance: TROPISETRON HYDROCHLORIDE
     Indication: Antiemetic supportive care
     Dosage: 5 MILLIGRAM, TID
     Route: 042
     Dates: start: 20220105, end: 20220105
  14. TROPISETRON HYDROCHLORIDE [Concomitant]
     Active Substance: TROPISETRON HYDROCHLORIDE
     Dosage: 5 MILLIGRAM, TID
     Route: 042
     Dates: start: 20220105, end: 20220125
  15. FLURBIPROFEN [Concomitant]
     Active Substance: FLURBIPROFEN
     Indication: Compression fracture
     Dosage: UNK
     Route: 062
     Dates: start: 20211231, end: 20220131
  16. FLURBIPROFEN [Concomitant]
     Active Substance: FLURBIPROFEN
     Dosage: UNK
     Route: 062
     Dates: start: 20220103, end: 20220103
  17. FLURBIPROFEN [Concomitant]
     Active Substance: FLURBIPROFEN
     Dosage: UNK
     Route: 062
     Dates: start: 20220106, end: 20220107
  18. FLURBIPROFEN [Concomitant]
     Active Substance: FLURBIPROFEN
     Dosage: UNK
     Route: 062
     Dates: start: 20220124, end: 20220124
  19. FLURBIPROFEN [Concomitant]
     Active Substance: FLURBIPROFEN
     Dosage: UNK
     Route: 062
     Dates: start: 20211231, end: 20211231
  20. POTASSIUM CHLORIDE [Concomitant]
     Active Substance: POTASSIUM CHLORIDE
     Indication: Hypokalaemia
     Dosage: 3 GRAM, QD
     Route: 048
     Dates: start: 20220103, end: 20220103

REACTIONS (10)
  - Hypokalaemia [Recovered/Resolved]
  - Diarrhoea [Recovered/Resolved]
  - Hepatic failure [Recovered/Resolved]
  - Pneumonia [Recovered/Resolved]
  - Hypoaesthesia [Recovering/Resolving]
  - Abdominal pain [Recovered/Resolved]
  - Chest discomfort [Recovered/Resolved]
  - Vomiting [Recovered/Resolved]
  - Nasal obstruction [Recovered/Resolved]
  - Arthritis [Recovering/Resolving]

NARRATIVE: CASE EVENT DATE: 20220103
